FAERS Safety Report 12429833 (Version 1)
Quarter: 2016Q2

REPORT INFORMATION
  Report Type: Spontaneous
  Country: PT (occurrence: PT)
  Receive Date: 20160602
  Receipt Date: 20160602
  Transmission Date: 20160815
  Serious: Yes (Other)
  Sender: FDA-Public Use
  Company Number: PT-FRESENIUS KABI-FK201602995

PATIENT
  Age: 66 Year
  Sex: Male

DRUGS (6)
  1. LEVOFOLIC [Suspect]
     Active Substance: LEUCOVORIN
     Indication: PRODUCT USED FOR UNKNOWN INDICATION
     Route: 042
     Dates: end: 20160503
  2. RANITIDINE. [Concomitant]
     Active Substance: RANITIDINE
     Indication: PREMEDICATION
     Route: 042
     Dates: end: 20160503
  3. TAVIST ALLERGY [Concomitant]
     Active Substance: CLEMASTINE FUMARATE
     Indication: PREMEDICATION
     Route: 042
     Dates: end: 20160503
  4. OXALIPLATIN 5MG/ML CONCENTRATE FOR SOLUTION FOR INFUSION [Suspect]
     Active Substance: OXALIPLATIN
     Indication: PRODUCT USED FOR UNKNOWN INDICATION
     Route: 042
     Dates: end: 20160503
  5. HIDROCORTISONE [Concomitant]
     Indication: PREMEDICATION
     Route: 042
     Dates: end: 20160503
  6. ONDANSETROM [Concomitant]
     Indication: PREMEDICATION
     Route: 042
     Dates: end: 20160503

REACTIONS (3)
  - Malaise [Recovered/Resolved]
  - Tremor [Recovered/Resolved]
  - Back pain [Recovered/Resolved]

NARRATIVE: CASE EVENT DATE: 20160503
